FAERS Safety Report 10306285 (Version 4)
Quarter: 2021Q2

REPORT INFORMATION
  Report Type: Report from Study
  Country: MX (occurrence: MX)
  Receive Date: 20140715
  Receipt Date: 20210513
  Transmission Date: 20210716
  Serious: Yes (Hospitalization, Other)
  Sender: FDA-Public Use
  Company Number: PHHY2013MX068398

PATIENT
  Age: 27 Year
  Sex: Female
  Weight: 85 kg

DRUGS (14)
  1. TRILEPTAL [Suspect]
     Active Substance: OXCARBAZEPINE
     Indication: SEIZURE
     Dosage: 5 DF (1 DF OF 5 TABLETS), QD
     Route: 048
     Dates: start: 2005
  2. TRILEPTAL [Suspect]
     Active Substance: OXCARBAZEPINE
     Dosage: 5 DF, QD (1.5 DF IN THE MORNING, 1 DF AT MIDDAY AND 2 DF IN THE EVENING)
     Route: 065
     Dates: start: 20130101
  3. LAXOYA [Concomitant]
     Indication: PRODUCT USED FOR UNKNOWN INDICATION
     Dosage: 4 DF, QD
     Route: 065
     Dates: start: 201201
  4. TRILEPTAL [Suspect]
     Active Substance: OXCARBAZEPINE
     Dosage: 4 DF, QD (2 DF IN THE MORNING AND 2 DF IN THE EVENING)
     Route: 065
     Dates: start: 2007, end: 201308
  5. RISPERDAL [Concomitant]
     Active Substance: RISPERIDONE
     Indication: ANXIETY
     Dosage: 1 DF, QD
     Route: 065
     Dates: start: 200504
  6. TRILEPTAL [Suspect]
     Active Substance: OXCARBAZEPINE
     Dosage: 4 DF, QD (1 DF IN THE MORNING, 1 DF AT MIDDAY AND 2 DF IN THE EVENING)
     Route: 065
     Dates: start: 200502, end: 2007
  7. TRILEPTAL [Suspect]
     Active Substance: OXCARBAZEPINE
     Dosage: 4.5 DF, QD (1.5 DF IN THE MORNING, 1 DF AT MIDDAY AND 2 DF IN THE EVENING)
     Route: 065
     Dates: start: 201406
  8. ANARA [Concomitant]
     Indication: DYSPEPSIA
     Dosage: UNK
     Route: 065
     Dates: start: 201101
  9. RIVOTRIL [Concomitant]
     Active Substance: CLONAZEPAM
     Indication: PRODUCT USED FOR UNKNOWN INDICATION
     Dosage: 1 DF, QD
     Route: 065
     Dates: start: 201301
  10. TRILEPTAL [Suspect]
     Active Substance: OXCARBAZEPINE
     Dosage: 6 DF, QD (2 DF IN THE MORNING, 2 DF IN THE AFTERNOON AND 2 DF IN THE EVENING)
     Route: 065
     Dates: start: 201308
  11. TRILEPTAL [Suspect]
     Active Substance: OXCARBAZEPINE
     Dosage: 4.5 DF, QD (1.5 DF IN THE MORNING, 1 DF AT MIDDAY AND 2 DF IN THE EVENING)
     Route: 065
  12. TRILEPTAL [Suspect]
     Active Substance: OXCARBAZEPINE
     Indication: ANXIETY
     Dosage: 4 DF, QD
     Route: 048
     Dates: start: 2005, end: 201902
  13. TRILEPTAL [Suspect]
     Active Substance: OXCARBAZEPINE
     Dosage: 5 DF, QD
     Route: 048
     Dates: start: 201902
  14. LOPERAMIDE [Concomitant]
     Active Substance: LOPERAMIDE
     Indication: ABNORMAL FAECES
     Dosage: 5 DF, QD
     Route: 065
     Dates: start: 20190425

REACTIONS (25)
  - Appendicitis [Recovered/Resolved]
  - Fall [Recovered/Resolved]
  - Benign neoplasm [Unknown]
  - Cardiac disorder [Recovered/Resolved]
  - Seizure [Unknown]
  - Blood pressure increased [Recovered/Resolved]
  - Syncope [Recovered/Resolved]
  - Seizure [Recovered/Resolved]
  - Abnormal behaviour [Recovered/Resolved]
  - Weight increased [Unknown]
  - Injury [Recovered/Resolved]
  - Aggression [Not Recovered/Not Resolved]
  - Seizure [Recovered/Resolved]
  - Stress [Not Recovered/Not Resolved]
  - Bite [Recovered/Resolved]
  - Condition aggravated [Unknown]
  - Suture rupture [Unknown]
  - Influenza [Unknown]
  - Nervousness [Not Recovered/Not Resolved]
  - Constipation [Recovered/Resolved]
  - Anticonvulsant drug level increased [Recovered/Resolved]
  - Prescribed overdose [Not Recovered/Not Resolved]
  - Peritonitis [Unknown]
  - Seizure [Recovered/Resolved]
  - Intestinal dilatation [Recovered/Resolved]

NARRATIVE: CASE EVENT DATE: 200707
